FAERS Safety Report 10099116 (Version 1)
Quarter: 2014Q2

REPORT INFORMATION
  Report Type: Spontaneous
  Country: US (occurrence: US)
  Receive Date: 20140423
  Receipt Date: 20140423
  Transmission Date: 20141212
  Serious: Yes (Hospitalization)
  Sender: FDA-Public Use
  Company Number: US-BAYER-2014-058217

PATIENT
  Age: 24 Year
  Sex: Female

DRUGS (7)
  1. YASMIN [Suspect]
  2. CLINDAMYCIN [Concomitant]
     Dosage: TWICE A DAY
     Route: 061
  3. TRETINOIN [Concomitant]
     Dosage: AT BEDTIME
     Route: 061
  4. ALBUTEROL [Concomitant]
     Dosage: TWO PUFFS FOUR TIMES A DAY AS NEEDED
     Route: 045
  5. FLAX SEED OIL [Concomitant]
     Dosage: 1000 MG, DAILY
     Route: 048
  6. FISH OIL [Concomitant]
     Dosage: 1000 MG, DAILY
     Route: 048
  7. CLARITIN [Concomitant]
     Dosage: DAILY AS NEEDED
     Route: 048

REACTIONS (1)
  - Deep vein thrombosis [Recovering/Resolving]
